FAERS Safety Report 24183206 (Version 1)
Quarter: 2024Q3

REPORT INFORMATION
  Report Type: Spontaneous
  Country: US (occurrence: US)
  Receive Date: 20240807
  Receipt Date: 20240807
  Transmission Date: 20241016
  Serious: Yes (Hospitalization)
  Sender: BAYER
  Company Number: US-BAYER-2024A111465

PATIENT
  Age: 43 Year
  Sex: Female

DRUGS (1)
  1. ADEMPAS [Suspect]
     Active Substance: RIOCIGUAT
     Indication: Pulmonary hypertension
     Dosage: 1 MG, TID
     Route: 048
     Dates: start: 20150714

REACTIONS (4)
  - Pyrexia [None]
  - Chills [None]
  - Dyspnoea [None]
  - Bronchitis [None]

NARRATIVE: CASE EVENT DATE: 20240722
